FAERS Safety Report 13941800 (Version 1)
Quarter: 2017Q3

REPORT INFORMATION
  Report Type: Spontaneous
  Country: FR (occurrence: FR)
  Receive Date: 20170906
  Receipt Date: 20170906
  Transmission Date: 20171127
  Serious: Yes (Other)
  Sender: FDA-Public Use
  Company Number: FR-ABBVIE-17P-056-2092435-00

PATIENT
  Age: 46 Year
  Sex: Male

DRUGS (5)
  1. KEPPRA [Suspect]
     Active Substance: LEVETIRACETAM
     Indication: PRODUCT USED FOR UNKNOWN INDICATION
     Route: 048
     Dates: start: 20170727
  2. TEMODAL [Suspect]
     Active Substance: TEMOZOLOMIDE
     Indication: GLIOBLASTOMA
     Route: 048
     Dates: start: 20170530, end: 20170720
  3. PARIET [Suspect]
     Active Substance: RABEPRAZOLE SODIUM
     Indication: PRODUCT USED FOR UNKNOWN INDICATION
     Route: 048
     Dates: start: 20170530, end: 20170720
  4. PREDNISONE. [Suspect]
     Active Substance: PREDNISONE
     Indication: GLIOBLASTOMA
     Route: 048
     Dates: start: 20170530, end: 20170730
  5. DEPAKINE [Suspect]
     Active Substance: VALPROATE SODIUM
     Indication: GLIOBLASTOMA
     Route: 048
     Dates: start: 20170530, end: 20170720

REACTIONS (3)
  - Cholestasis [Not Recovered/Not Resolved]
  - Hepatitis [Recovering/Resolving]
  - Jaundice [Not Recovered/Not Resolved]

NARRATIVE: CASE EVENT DATE: 2017
